FAERS Safety Report 17760145 (Version 11)
Quarter: 2024Q2

REPORT INFORMATION
  Report Type: Spontaneous
  Country: US (occurrence: US)
  Receive Date: 20200508
  Receipt Date: 20240614
  Transmission Date: 20240715
  Serious: Yes (Other)
  Sender: FDA-Public Use
  Company Number: US-PFIZER INC-2020184703

PATIENT
  Age: 65 Year
  Sex: Female
  Weight: 55.338 kg

DRUGS (1)
  1. PREMARIN [Suspect]
     Active Substance: ESTROGENS, CONJUGATED
     Dosage: 1.25 MG, DAILY (TAKE 1 TABLET BY MOUTH EVERY DAY)
     Route: 048

REACTIONS (5)
  - Suicide attempt [Unknown]
  - Ear discomfort [Unknown]
  - Disorientation [Unknown]
  - Nervousness [Unknown]
  - Withdrawal syndrome [Unknown]
